FAERS Safety Report 6450157-6 (Version None)
Quarter: 2009Q4

REPORT INFORMATION
  Report Type: 
  Country: None (occurrence: None)
  Receive Date: 20091123
  Receipt Date: 20091110
  Transmission Date: 20100525
  Serious: Yes (Death, Other)
  Sender: FDA-Public Use
  Company Number: JP-ROCHE-610263

PATIENT
  Age: 42 Year
  Sex: Female

DRUGS (2)
  1. CELLCEPT [Suspect]
     Indication: PROPHYLAXIS AGAINST GRAFT VERSUS HOST DISEASE
     Route: 048
  2. CYCLOSPORINE [Concomitant]

REACTIONS (3)
  - RENAL IMPAIRMENT [None]
  - SEPTIC SHOCK [None]
  - THROMBOTIC MICROANGIOPATHY [None]
